FAERS Safety Report 9979663 (Version 2)
Quarter: 2014Q1

REPORT INFORMATION
  Report Type: Report from Study
  Country: US (occurrence: US)
  Receive Date: 20140306
  Receipt Date: 20140306
  Transmission Date: 20141002
  Serious: No
  Sender: FDA-Public Use
  Company Number: US-ABBVIE-13P-163-1152107-00

PATIENT
  Age: 42 Year
  Sex: Female

DRUGS (6)
  1. HUMIRA [Suspect]
     Indication: CROHN^S DISEASE
     Dosage: 160 MG
     Route: 058
     Dates: start: 20130919, end: 20130919
  2. HUMIRA [Suspect]
     Dates: start: 20131003, end: 20131003
  3. HUMIRA [Suspect]
     Dates: start: 20131017
  4. CYCLOBENZAPRINE [Concomitant]
     Indication: PAIN
     Route: 048
  5. TRAMADOL [Concomitant]
     Indication: PAIN
  6. OXYCODONE [Concomitant]
     Indication: PAIN
     Dosage: Q EVERY 4-6 HRS PRN

REACTIONS (7)
  - Fatigue [Not Recovered/Not Resolved]
  - Injection site pain [Not Recovered/Not Resolved]
  - Upper-airway cough syndrome [Recovered/Resolved]
  - Urinary retention [Not Recovered/Not Resolved]
  - Chills [Not Recovered/Not Resolved]
  - Nasopharyngitis [Not Recovered/Not Resolved]
  - Pharyngitis streptococcal [Unknown]
